FAERS Safety Report 12175239 (Version 1)
Quarter: 2016Q1

REPORT INFORMATION
  Report Type: Spontaneous
  Country: IT (occurrence: IT)
  Receive Date: 20160314
  Receipt Date: 20160314
  Transmission Date: 20160526
  Serious: Yes (Hospitalization)
  Sender: FDA-Public Use
  Company Number: IT-JNJFOC-20160308397

PATIENT
  Age: 78 Year
  Sex: Female

DRUGS (3)
  1. HALDOL [Suspect]
     Active Substance: HALOPERIDOL
     Indication: INSOMNIA
     Route: 048
     Dates: start: 20151028, end: 20151228
  2. RIVOTRIL [Concomitant]
     Active Substance: CLONAZEPAM
     Indication: ANXIETY
     Route: 048
     Dates: start: 20140101
  3. DROPAXIN [Concomitant]
     Indication: DEPRESSION
     Route: 048
     Dates: start: 20140101

REACTIONS (9)
  - Bradyphrenia [Recovering/Resolving]
  - Confusional state [Recovering/Resolving]
  - Dysarthria [Recovering/Resolving]
  - Blood creatine phosphokinase increased [Unknown]
  - Dry mouth [Recovering/Resolving]
  - Product use issue [Unknown]
  - Off label use [Unknown]
  - Disorientation [Recovering/Resolving]
  - Muscle rigidity [Recovering/Resolving]

NARRATIVE: CASE EVENT DATE: 20151228
